FAERS Safety Report 23281643 (Version 3)
Quarter: 2025Q1

REPORT INFORMATION
  Report Type: Spontaneous
  Country: GB (occurrence: GB)
  Receive Date: 20231211
  Receipt Date: 20250129
  Transmission Date: 20250409
  Serious: Yes (Hospitalization, Other)
  Sender: MYLAN
  Company Number: GB-MYLANLABS-2023M1032606

PATIENT
  Age: 53 Year
  Sex: Female

DRUGS (1)
  1. CLOZARIL [Suspect]
     Active Substance: CLOZAPINE
     Indication: Schizophrenia
     Route: 048
     Dates: start: 20010701, end: 20231204

REACTIONS (10)
  - Malaise [Unknown]
  - Coma [Unknown]
  - Dyspnoea [Unknown]
  - Pneumonia [Unknown]
  - Cough [Unknown]
  - Body temperature abnormal [Unknown]
  - Oxygen saturation decreased [Unknown]
  - Eosinophil count decreased [Not Recovered/Not Resolved]
  - White blood cell count decreased [Recovered/Resolved]
  - Oropharyngeal pain [Unknown]

NARRATIVE: CASE EVENT DATE: 20231106
